FAERS Safety Report 19607381 (Version 2)
Quarter: 2021Q3

REPORT INFORMATION
  Report Type: Spontaneous
  Country: US (occurrence: US)
  Receive Date: 20210726
  Receipt Date: 20210813
  Transmission Date: 20211014
  Serious: No
  Sender: FDA-Public Use
  Company Number: US-MTPC-MTDA2021-0017526

PATIENT
  Sex: Male

DRUGS (1)
  1. RADICAVA [Suspect]
     Active Substance: EDARAVONE
     Indication: AMYOTROPHIC LATERAL SCLEROSIS
     Dosage: STANDARD DOSING
     Route: 065
     Dates: start: 202003

REACTIONS (4)
  - Aphasia [Unknown]
  - Bradykinesia [Unknown]
  - Fatigue [Unknown]
  - Disease progression [Unknown]
